FAERS Safety Report 10488039 (Version 2)
Quarter: 2014Q4

REPORT INFORMATION
  Report Type: Report from Study
  Country: US (occurrence: US)
  Receive Date: 20141001
  Receipt Date: 20141202
  Transmission Date: 20150528
  Serious: Yes (Hospitalization)
  Sender: FDA-Public Use
  Company Number: US-TEVA-512499USA

PATIENT
  Age: 57 Year
  Sex: Male

DRUGS (1)
  1. CLOZAPINE. [Suspect]
     Active Substance: CLOZAPINE
     Indication: SCHIZOAFFECTIVE DISORDER
     Route: 048

REACTIONS (2)
  - Treatment noncompliance [Unknown]
  - Psychiatric symptom [Unknown]

NARRATIVE: CASE EVENT DATE: 20140923
